FAERS Safety Report 19231816 (Version 1)
Quarter: 2021Q2

REPORT INFORMATION
  Report Type: Spontaneous
  Country: JP (occurrence: JP)
  Receive Date: 20210507
  Receipt Date: 20210507
  Transmission Date: 20210717
  Serious: Yes (Other)
  Sender: FDA-Public Use
  Company Number: JP-PFIZER INC-2021481382

PATIENT
  Age: 75 Year
  Sex: Male
  Weight: 40 kg

DRUGS (15)
  1. SPIRONOLACTONE. [Suspect]
     Active Substance: SPIRONOLACTONE
     Dosage: 25 MG, AS NEEDED
  2. FUROSEMIDE. [Suspect]
     Active Substance: FUROSEMIDE
  3. SUVOREXANT. [Suspect]
     Active Substance: SUVOREXANT
  4. AZOSEMIDE [Concomitant]
     Active Substance: AZOSEMIDE
     Indication: OEDEMA PERIPHERAL
     Dosage: 30 MG, AS NEEDED
  5. CLONAZEPAM. [Suspect]
     Active Substance: CLONAZEPAM
  6. PREDNISOLONE. [Concomitant]
     Active Substance: PREDNISOLONE
     Indication: INTERSTITIAL LUNG DISEASE
     Dosage: 4 MG
  7. TOCOPHERYL NICOTINATE [Concomitant]
     Active Substance: TOCOPHERYL NICOTINATE, D-.ALPHA.
     Dosage: 300 MG
  8. LEVETIRACETAM. [Suspect]
     Active Substance: LEVETIRACETAM
  9. LEVODOPA/CARBIDOPA [Concomitant]
     Active Substance: CARBIDOPA\LEVODOPA
     Dosage: 200 MG
  10. VOGLIBOSE [Suspect]
     Active Substance: VOGLIBOSE
     Indication: HYPERGLYCAEMIA
     Dosage: 0.2 MG, 3X/DAY
  11. CALCIUM L?ASPARTATE HYDRATE [Suspect]
     Active Substance: ASPARTIC ACID
     Dosage: 1.2 G
  12. FERROUS CITRATE SODIUM [Suspect]
     Active Substance: SODIUM FERROUS CITRATE
     Dosage: UNK
  13. MECOBALAMIN [Suspect]
     Active Substance: METHYLCOBALAMIN
  14. LACTOMIN [Concomitant]
     Active Substance: DIETARY SUPPLEMENT\PROBIOTICS
     Dosage: 3 G
  15. PREDNISOLONE. [Concomitant]
     Active Substance: PREDNISOLONE
     Dosage: 3 MG

REACTIONS (2)
  - Drug-induced liver injury [Recovered/Resolved]
  - Off label use [Unknown]
